FAERS Safety Report 11834064 (Version 3)
Quarter: 2016Q1

REPORT INFORMATION
  Report Type: Spontaneous
  Country: US (occurrence: US)
  Receive Date: 20151214
  Receipt Date: 20160113
  Transmission Date: 20160525
  Serious: Yes (Other)
  Sender: FDA-Public Use
  Company Number: US-GILEAD-2015-0188047

PATIENT

DRUGS (5)
  1. RANEXA [Suspect]
     Active Substance: RANOLAZINE
     Indication: CORONARY ARTERY DISEASE
     Dosage: 500 MG, BID
     Route: 065
     Dates: start: 20151105, end: 20151128
  2. RANEXA [Suspect]
     Active Substance: RANOLAZINE
     Indication: DYSPNOEA EXERTIONAL
  3. RANEXA [Suspect]
     Active Substance: RANOLAZINE
     Indication: CARDIAC STRESS TEST
  4. COUMADIN [Suspect]
     Active Substance: WARFARIN SODIUM
     Indication: PRODUCT USED FOR UNKNOWN INDICATION
     Route: 065
  5. RANEXA [Suspect]
     Active Substance: RANOLAZINE
     Indication: PERCUTANEOUS CORONARY INTERVENTION

REACTIONS (3)
  - Off label use [Recovered/Resolved]
  - International normalised ratio increased [Unknown]
  - Drug interaction [Unknown]
